FAERS Safety Report 8659980 (Version 3)
Quarter: 2012Q4

REPORT INFORMATION
  Report Type: 
  Country: US (occurrence: US)
  Receive Date: 20120711
  Receipt Date: 20121001
  Transmission Date: 20130627
  Serious: Yes (Hospitalization, Other)
  Sender: FDA-Public Use
  Company Number: US-ELI_LILLY_AND_COMPANY-US201207001393

PATIENT
  Age: 69 Year
  Sex: Female
  Weight: 54.88 kg

DRUGS (11)
  1. FORTEO [Suspect]
     Indication: OSTEOPOROSIS
     Dosage: 20 ug, qd
     Route: 058
     Dates: start: 201012
  2. LEVOTHYROXINE [Concomitant]
     Dosage: UNK
  3. CLARITIN [Concomitant]
     Dosage: UNK
  4. ALEVE [Concomitant]
     Dosage: UNK
  5. OSTEO BI-FLEX [Concomitant]
     Dosage: UNK
  6. CALTRATE WITH VITAMIN D [Concomitant]
     Dosage: UNK
  7. MUCINEX [Concomitant]
     Dosage: UNK
  8. SYSTANE [Concomitant]
     Dosage: UNK
  9. XALATAN [Concomitant]
     Dosage: UNK
  10. MULTIVITAMIN [Concomitant]
     Dosage: UNK
  11. PLAQUENIL [Concomitant]
     Dosage: UNK

REACTIONS (4)
  - Hip arthroplasty [Recovered/Resolved]
  - Knee arthroplasty [Recovered/Resolved]
  - Bone density decreased [Unknown]
  - Osteoarthritis [Unknown]
